FAERS Safety Report 7619847-3 (Version None)
Quarter: 2011Q3

REPORT INFORMATION
  Report Type: 
  Country: None (occurrence: None)
  Receive Date: 20110719
  Receipt Date: 20100727
  Transmission Date: 20111222
  Serious: Yes (Other)
  Sender: FDA-Public Use
  Company Number: US-ABBOTT-11P-163-0839354-00

PATIENT
  Age: 33 Year
  Sex: Female

DRUGS (4)
  1. HYTRIN [Suspect]
  2. HYTRIN [Suspect]
     Dosage: WITHIN 25% OF HER PREVIOUS DOSE
  3. HYTRIN [Suspect]
     Indication: COMPLEX REGIONAL PAIN SYNDROME
  4. GABAPENTIN [Concomitant]
     Indication: COMPLEX REGIONAL PAIN SYNDROME

REACTIONS (2)
  - POSTURAL ORTHOSTATIC TACHYCARDIA SYNDROME [None]
  - OFF LABEL USE [None]
